FAERS Safety Report 20998764 (Version 1)
Quarter: 2022Q2

REPORT INFORMATION
  Report Type: Spontaneous
  Country: US (occurrence: None)
  Receive Date: 20220622
  Receipt Date: 20220622
  Transmission Date: 20220720
  Serious: Yes (Hospitalization)
  Sender: FDA-Public Use
  Company Number: None

PATIENT
  Age: 53 Year
  Sex: Female
  Weight: 54 kg

DRUGS (2)
  1. CEFAZOLIN [Suspect]
     Active Substance: CEFAZOLIN
     Indication: Arthritis bacterial
     Dosage: FREQUENCY : DAILY;?
     Route: 042
     Dates: start: 20220502, end: 20220513
  2. VANCOMYCIN [Suspect]
     Active Substance: VANCOMYCIN
     Indication: Arthritis bacterial
     Dosage: FREQUENCY : TWICE A DAY;?
     Route: 042
     Dates: start: 20220513, end: 20220516

REACTIONS (6)
  - Urticaria [None]
  - Lip swelling [None]
  - Swelling face [None]
  - Chest discomfort [None]
  - Dysphagia [None]
  - Dyspnoea [None]

NARRATIVE: CASE EVENT DATE: 20220513
